FAERS Safety Report 15441409 (Version 3)
Quarter: 2018Q4

REPORT INFORMATION
  Report Type: Spontaneous
  Country: SE (occurrence: SE)
  Receive Date: 20180928
  Receipt Date: 20181105
  Transmission Date: 20190204
  Serious: Yes (Hospitalization, Disabling)
  Sender: FDA-Public Use
  Company Number: SE-AMGEN-SWESP2018127567

PATIENT
  Age: 69 Year
  Sex: Male

DRUGS (3)
  1. ARANESP [Suspect]
     Active Substance: DARBEPOETIN ALFA
     Dosage: 50 MUG, 3 TIMES/WK
     Route: 058
     Dates: start: 2017, end: 20180907
  2. ARANESP [Suspect]
     Active Substance: DARBEPOETIN ALFA
     Dosage: 100 MUG, 2 TIMES/WK
     Route: 058
     Dates: start: 20180908, end: 20180913
  3. ARANESP [Suspect]
     Active Substance: DARBEPOETIN ALFA
     Indication: NEPHROGENIC ANAEMIA
     Dosage: 50 MUG, 4 TIMES/WK
     Route: 058
     Dates: start: 20161024

REACTIONS (4)
  - Off label use [Unknown]
  - Anaemia [Not Recovered/Not Resolved]
  - Infection [Unknown]
  - Drug effect decreased [Unknown]

NARRATIVE: CASE EVENT DATE: 20161024
